FAERS Safety Report 16840955 (Version 1)
Quarter: 2019Q3

REPORT INFORMATION
  Report Type: Spontaneous
  Country: US (occurrence: US)
  Receive Date: 20190923
  Receipt Date: 20190923
  Transmission Date: 20191005
  Serious: Yes (Hospitalization)
  Sender: FDA-Public Use
  Company Number: US-MALLINCKRODT-T201906446

PATIENT

DRUGS (1)
  1. H.P. ACTHAR [Suspect]
     Active Substance: CORTICOTROPIN
     Indication: PRODUCT USED FOR UNKNOWN INDICATION
     Dosage: UNK
     Route: 064
     Dates: start: 2019

REACTIONS (4)
  - Paternal exposure during pregnancy [Unknown]
  - Brain injury [Unknown]
  - Neonatal respiratory depression [Unknown]
  - Neonatal anoxia [Unknown]

NARRATIVE: CASE EVENT DATE: 2019
